FAERS Safety Report 5117245-8 (Version None)
Quarter: 2006Q3

REPORT INFORMATION
  Report Type: 
  Country: None (occurrence: None)
  Receive Date: 20060929
  Receipt Date: 20060727
  Transmission Date: 20061208
  Serious: Yes (Life-Threatening, Hospitalization, Other)
  Sender: FDA-Public Use
  Company Number: US-BAYER-200614822BWH

PATIENT
  Age: 71 Year
  Sex: Female

DRUGS (8)
  1. AVELOX [Suspect]
     Indication: DRUG USE FOR UNKNOWN INDICATION
     Route: 048
     Dates: start: 20060519, end: 20060525
  2. PRILOSEC [Concomitant]
     Dosage: TOTAL DAILY DOSE: 40 MG
     Route: 048
  3. LEVOXYL [Concomitant]
     Dosage: TOTAL DAILY DOSE: 0.025 MG
     Route: 048
  4. CELEXA [Concomitant]
     Dosage: TOTAL DAILY DOSE: 40 MG
     Route: 048
  5. PLENDIL [Concomitant]
     Dosage: TOTAL DAILY DOSE: 5 MG
     Route: 048
  6. CLONAZEPAM [Concomitant]
     Dosage: TOTAL DAILY DOSE: 0.5 MG
     Route: 048
  7. AMITRIPTYLINE HCL [Concomitant]
     Dosage: TOTAL DAILY DOSE: 25 MG
     Route: 048
  8. PREDNISONE TAB [Concomitant]
     Dosage: TOTAL DAILY DOSE: 5 MG
     Route: 048

REACTIONS (15)
  - ACUTE RESPIRATORY DISTRESS SYNDROME [None]
  - ANOREXIA [None]
  - CIRCULATORY COLLAPSE [None]
  - COAGULOPATHY [None]
  - EARLY SATIETY [None]
  - EXTRAVASATION BLOOD [None]
  - LEUKOCYTOCLASTIC VASCULITIS [None]
  - NAUSEA [None]
  - PAPILLOEDEMA [None]
  - PAROTID GLAND ENLARGEMENT [None]
  - RASH [None]
  - RASH MACULAR [None]
  - RENAL FAILURE [None]
  - RESPIRATORY FAILURE [None]
  - SKIN OEDEMA [None]
